FAERS Safety Report 5097861-2 (Version None)
Quarter: 2006Q3

REPORT INFORMATION
  Report Type: 
  Country: None (occurrence: None)
  Receive Date: 20060905
  Receipt Date: 20060905
  Transmission Date: 20061208
  Serious: Yes (Other)
  Sender: FDA-Public Use
  Company Number: None

PATIENT
  Age: 38 Year
  Sex: Male
  Weight: 87.0906 kg

DRUGS (2)
  1. LEVAQUIN [Suspect]
     Indication: SINUSITIS
     Dosage: 750 MG 1X DAILY PO
     Route: 048
     Dates: start: 20060902, end: 20060902
  2. LEVAQUIN [Suspect]
     Indication: SINUSITIS
     Dosage: 500 MG 1 X DAILY PO
     Route: 048
     Dates: start: 20060805, end: 20060815

REACTIONS (5)
  - BLISTER [None]
  - EYELIDS PRURITUS [None]
  - PRURITUS [None]
  - RASH [None]
  - SWELLING [None]
